FAERS Safety Report 5760864-6 (Version None)
Quarter: 2008Q2

REPORT INFORMATION
  Report Type: 
  Country: None (occurrence: None)
  Receive Date: 20080606
  Receipt Date: 20080603
  Transmission Date: 20081010
  Serious: Yes (Other)
  Sender: FDA-Public Use
  Company Number: US-ASTRAZENECA-2008UW11224

PATIENT
  Age: 69 Year
  Sex: Female
  Weight: 68.5 kg

DRUGS (11)
  1. ENTOCORT EC [Suspect]
     Indication: CROHN'S DISEASE
     Route: 048
     Dates: start: 20050801, end: 20070201
  2. CARDIZEM [Concomitant]
  3. DIGOXIN [Concomitant]
  4. ZOLOFT [Concomitant]
  5. BUSPAR [Concomitant]
  6. LASIX [Concomitant]
  7. POTASSIUM CHLORIDE [Concomitant]
  8. ADVAIR DISKUS 100/50 [Concomitant]
  9. LANTUS [Concomitant]
  10. NOVOLOG [Concomitant]
  11. METFORMIN HCL [Concomitant]

REACTIONS (2)
  - HAEMORRHAGE [None]
  - RECTAL HAEMORRHAGE [None]
